FAERS Safety Report 25453412 (Version 2)
Quarter: 2025Q2

REPORT INFORMATION
  Report Type: Spontaneous
  Country: US (occurrence: US)
  Receive Date: 20250619
  Receipt Date: 20250623
  Transmission Date: 20250716
  Serious: No
  Sender: NOVARTIS
  Company Number: US-002147023-NVSC2025US097046

PATIENT
  Age: 76 Year
  Sex: Male

DRUGS (1)
  1. LEQVIO [Suspect]
     Active Substance: INCLISIRAN SODIUM
     Indication: Hyperlipidaemia
     Route: 058
     Dates: start: 20250611

REACTIONS (5)
  - Burning sensation [Unknown]
  - Pruritus [Unknown]
  - Muscle spasms [Unknown]
  - Diplopia [Unknown]
  - Tremor [Unknown]

NARRATIVE: CASE EVENT DATE: 20250611
